FAERS Safety Report 6681727-8 (Version None)
Quarter: 2010Q2

REPORT INFORMATION
  Report Type: 
  Country: None (occurrence: None)
  Receive Date: 20100414
  Receipt Date: 20100404
  Transmission Date: 20101027
  Serious: Yes (Hospitalization, Other)
  Sender: FDA-Public Use
  Company Number: US-PFIZER INC-2010042917

PATIENT
  Age: 49 Year
  Sex: Female
  Weight: 72 kg

DRUGS (3)
  1. CHANTIX [Suspect]
     Indication: SMOKING CESSATION THERAPY
     Dosage: 0.5 MG, 1X/DAY
     Route: 048
     Dates: start: 20100326, end: 20100401
  2. LOVASTATIN [Concomitant]
     Indication: BLOOD CHOLESTEROL INCREASED
     Dosage: UNK
  3. METOPROLOL [Concomitant]
     Dosage: UNK

REACTIONS (13)
  - BLISTER [None]
  - CHEST PAIN [None]
  - CHILLS [None]
  - ERYTHEMA [None]
  - LOCAL SWELLING [None]
  - OEDEMA PERIPHERAL [None]
  - OROPHARYNGEAL BLISTERING [None]
  - OROPHARYNGEAL PAIN [None]
  - PAIN [None]
  - PYREXIA [None]
  - SPEECH DISORDER [None]
  - URTICARIA [None]
  - WHITE BLOOD CELL COUNT INCREASED [None]
